FAERS Safety Report 7328666-7 (Version None)
Quarter: 2011Q1

REPORT INFORMATION
  Report Type: 
  Country: None (occurrence: None)
  Receive Date: 20110303
  Receipt Date: 20110221
  Transmission Date: 20110831
  Serious: Yes (Hospitalization)
  Sender: FDA-Public Use
  Company Number: NO-JNJFOC-20110205943

PATIENT
  Sex: Male

DRUGS (8)
  1. FOSAMAX [Concomitant]
     Route: 065
  2. ENALAPRIL MALEATE [Concomitant]
     Dosage: DOSE INCREASE TO 20 MG
     Route: 065
  3. GLIMEPIRIDE [Concomitant]
     Dosage: DOSE INCREASE TO 20 MG
     Route: 065
  4. CALCIGRAN FORTE [Concomitant]
     Route: 065
  5. BOTULINUM TOXIN [Concomitant]
     Indication: BLEPHAROSPASM
     Dosage: DOSE INCREASE TO 20 MG
     Route: 065
  6. REMICADE [Suspect]
     Indication: POLYARTERITIS NODOSA
     Route: 042
  7. ALBYL E [Concomitant]
     Route: 065
  8. SIMVASTATIN [Concomitant]
     Dosage: EVENING
     Route: 065

REACTIONS (1)
  - ACUTE MYOCARDIAL INFARCTION [None]
